FAERS Safety Report 5743888-4 (Version None)
Quarter: 2008Q2

REPORT INFORMATION
  Report Type: 
  Country: None (occurrence: None)
  Receive Date: 20080520
  Receipt Date: 20080512
  Transmission Date: 20081010
  Serious: Yes (Hospitalization, Other)
  Sender: FDA-Public Use
  Company Number: FR-ELI_LILLY_AND_COMPANY-FR200805002003

PATIENT
  Sex: Female

DRUGS (2)
  1. GEMZAR [Suspect]
     Indication: PANCREATIC CARCINOMA METASTATIC
     Dosage: 1500 MG, UNKNOWN
     Route: 042
     Dates: start: 20080114, end: 20080121
  2. ELOXATIN [Concomitant]
     Indication: PANCREATIC CARCINOMA METASTATIC
     Dosage: 510 MG, UNKNOWN
     Route: 042
     Dates: start: 20080114, end: 20080121

REACTIONS (3)
  - NEPHROLITHIASIS [None]
  - OBSTRUCTIVE UROPATHY [None]
  - RENAL FAILURE ACUTE [None]
